FAERS Safety Report 8374179-3 (Version None)
Quarter: 2012Q2

REPORT INFORMATION
  Report Type: 
  Country: None (occurrence: None)
  Receive Date: 20120521
  Receipt Date: 20120510
  Transmission Date: 20120825
  Serious: Yes (Hospitalization)
  Sender: FDA-Public Use
  Company Number: ES-GLAXOSMITHKLINE-B0802055A

PATIENT
  Age: 41 Year
  Sex: Female

DRUGS (6)
  1. HIDROALTESONA [Suspect]
     Indication: HYPOTHALAMO-PITUITARY DISORDER
     Route: 048
     Dates: start: 20101026
  2. PAROXETINE HCL [Suspect]
     Indication: DEPRESSION
     Route: 048
     Dates: start: 20101026
  3. DESMOPRESSIN ACETATE [Interacting]
     Indication: HYPOTHALAMO-PITUITARY DISORDER
     Route: 045
     Dates: start: 20101020, end: 20120111
  4. FENITOINA [Concomitant]
     Indication: EPILEPSY
     Route: 048
     Dates: start: 20111001
  5. LEVOTHYROXINE SODIUM [Concomitant]
     Indication: HYPOTHALAMO-PITUITARY DISORDER
     Route: 048
     Dates: start: 20110916
  6. OMEPRAZOLE [Concomitant]
     Indication: GASTRITIS PROPHYLAXIS
     Route: 048
     Dates: start: 20120321

REACTIONS (3)
  - HYPONATRAEMIA [None]
  - DRUG INTERACTION [None]
  - DEPRESSED LEVEL OF CONSCIOUSNESS [None]
